FAERS Safety Report 6280218-6 (Version None)
Quarter: 2009Q3

REPORT INFORMATION
  Report Type: 
  Country: None (occurrence: None)
  Receive Date: 20090723
  Receipt Date: 20090622
  Transmission Date: 20100115
  Serious: Yes (Hospitalization, Other)
  Sender: FDA-Public Use
  Company Number: US-MERCK-0906USA04916

PATIENT
  Age: 60 Year
  Sex: Male

DRUGS (5)
  1. PRINIVIL [Suspect]
     Indication: BLOOD PRESSURE MANAGEMENT
     Route: 048
  2. PRINIVIL [Suspect]
     Route: 048
     Dates: start: 20070701
  3. LITHIUM [Suspect]
     Indication: MANIA
     Route: 048
  4. LITHIUM [Suspect]
     Route: 048
     Dates: start: 20080401
  5. LITHIUM [Suspect]
     Route: 048

REACTIONS (6)
  - CONFUSIONAL STATE [None]
  - DIZZINESS [None]
  - DRUG INTERACTION [None]
  - FALL [None]
  - FATIGUE [None]
  - TREMOR [None]
